FAERS Safety Report 5750635-9 (Version None)
Quarter: 2008Q2

REPORT INFORMATION
  Report Type: 
  Country: None (occurrence: None)
  Receive Date: 20080528
  Receipt Date: 20080415
  Transmission Date: 20081010
  Serious: No
  Sender: FDA-Public Use
  Company Number: US-ABBOTT-08P-163-0447528-00

PATIENT
  Sex: Male
  Weight: 93.18 kg

DRUGS (3)
  1. SIMCOR [Suspect]
     Indication: BLOOD CHOLESTEROL INCREASED
     Route: 048
     Dates: start: 20080406, end: 20080413
  2. SIMCOR [Suspect]
     Route: 048
     Dates: start: 20080414
  3. SABRE INFUSION [Concomitant]
     Indication: MULTIPLE SCLEROSIS
     Dosage: MONTHLY
     Route: 042

REACTIONS (2)
  - OVERDOSE [None]
  - PRURITUS [None]
